FAERS Safety Report 16891889 (Version 1)
Quarter: 2019Q4

REPORT INFORMATION
  Report Type: Spontaneous
  Country: US (occurrence: US)
  Receive Date: 20191007
  Receipt Date: 20191007
  Transmission Date: 20200122
  Serious: No
  Sender: FDA-Public Use
  Company Number: US-009507513-1910USA003924

PATIENT
  Sex: Female

DRUGS (1)
  1. PRINIVIL [Suspect]
     Active Substance: LISINOPRIL

REACTIONS (3)
  - Drug hypersensitivity [Unknown]
  - Lip swelling [Unknown]
  - Swelling [Unknown]
